FAERS Safety Report 8113571-9 (Version None)
Quarter: 2012Q1

REPORT INFORMATION
  Report Type: 
  Country: None (occurrence: None)
  Receive Date: 20120203
  Receipt Date: 20120131
  Transmission Date: 20120608
  Serious: Yes (Death, Hospitalization)
  Sender: FDA-Public Use
  Company Number: GR-AMGEN-GRCCT2011008373

PATIENT
  Age: 78 Year
  Sex: Female

DRUGS (9)
  1. ONDANSETRON HCL [Concomitant]
     Indication: PREMEDICATION
     Dosage: 8 MG, Q3WK
     Route: 042
     Dates: start: 20101018, end: 20110103
  2. FENISTIL [Concomitant]
     Indication: PREMEDICATION
     Dosage: 4 MG, Q3WK
     Route: 042
     Dates: start: 20101018, end: 20110103
  3. DEXAMETHASONE [Concomitant]
     Indication: PREMEDICATION
     Dosage: 20 MG, Q3WK
     Route: 042
     Dates: start: 20101018, end: 20110103
  4. XELODA [Concomitant]
     Indication: COLORECTAL CANCER METASTATIC
     Dosage: 2300 MG, UNK
     Dates: start: 20101018, end: 20110116
  5. PANITUMUMAB [Suspect]
     Indication: COLORECTAL CANCER METASTATIC
     Dosage: 567 MG, Q3WK
     Route: 042
     Dates: start: 20101018, end: 20110103
  6. ZANTAC [Concomitant]
     Indication: PREMEDICATION
     Dosage: 150 MG, Q3WK
     Route: 042
     Dates: start: 20101018, end: 20110103
  7. OXALIPLATIN [Concomitant]
     Indication: COLORECTAL CANCER METASTATIC
     Dosage: 205 MG, Q3WK
     Route: 042
     Dates: start: 20101018, end: 20110103
  8. LOPERAMIDE HCL [Concomitant]
     Dosage: 2 MG, UNK
     Dates: start: 20101106, end: 20110117
  9. RIFAXIMIN [Concomitant]
     Dosage: 200 MG, UNK
     Dates: start: 20101106, end: 20101114

REACTIONS (5)
  - SOMNOLENCE [None]
  - DYSPNOEA [None]
  - DIARRHOEA [None]
  - VOMITING [None]
  - DEPRESSED LEVEL OF CONSCIOUSNESS [None]
